FAERS Safety Report 7223921-3 (Version None)
Quarter: 2011Q1

REPORT INFORMATION
  Report Type: 
  Country: None (occurrence: None)
  Receive Date: 20110113
  Receipt Date: 20110104
  Transmission Date: 20110831
  Serious: No
  Sender: FDA-Public Use
  Company Number: US-BIOGENIDEC-2010BI021770

PATIENT
  Age: 51 Year
  Sex: Female

DRUGS (1)
  1. TYSABRI [Suspect]
     Indication: MULTIPLE SCLEROSIS
     Route: 042
     Dates: start: 20090714

REACTIONS (7)
  - MUSCLE SPASMS [None]
  - DEPRESSED MOOD [None]
  - PAIN IN EXTREMITY [None]
  - APHASIA [None]
  - FATIGUE [None]
  - MUSCULOSKELETAL PAIN [None]
  - ASTHENIA [None]
